FAERS Safety Report 13687252 (Version 1)
Quarter: 2017Q2

REPORT INFORMATION
  Report Type: Spontaneous
  Country: US (occurrence: US)
  Receive Date: 20170623
  Receipt Date: 20170623
  Transmission Date: 20170830
  Serious: Yes (Other)
  Sender: FDA-Public Use
  Company Number: US-009507513-1706USA007451

PATIENT
  Age: 30 Year
  Sex: Female
  Weight: 69 kg

DRUGS (1)
  1. IMPLANON [Suspect]
     Active Substance: ETONOGESTREL
     Indication: CONTRACEPTION
     Dosage: RIGHT ARM
     Route: 059
     Dates: start: 20041028

REACTIONS (7)
  - Incorrect drug administration duration [Unknown]
  - Difficulty removing drug implant [Not Recovered/Not Resolved]
  - Migration of implanted drug [Unknown]
  - Infertility [Unknown]
  - Pregnancy with implant contraceptive [Recovered/Resolved]
  - Complication associated with device [Unknown]
  - Unintended pregnancy [Recovered/Resolved]
